FAERS Safety Report 6471150-3 (Version None)
Quarter: 2009Q4

REPORT INFORMATION
  Report Type: 
  Country: None (occurrence: None)
  Receive Date: 20091203
  Receipt Date: 20080201
  Transmission Date: 20100525
  Serious: Yes (Other)
  Sender: FDA-Public Use
  Company Number: TR-ELI_LILLY_AND_COMPANY-TR200802003378

PATIENT
  Sex: Female

DRUGS (2)
  1. HUMULIN N [Suspect]
     Indication: TYPE 2 DIABETES MELLITUS
     Dosage: 15 UNITS EACH MORNING
     Route: 058
  2. HUMULIN N [Suspect]
     Dosage: 17 U, EACH EVENING
     Route: 058

REACTIONS (3)
  - BLOOD GLUCOSE ABNORMAL [None]
  - EYE OPERATION [None]
  - NEOPLASM MALIGNANT [None]
